FAERS Safety Report 20408137 (Version 3)
Quarter: 2022Q2

REPORT INFORMATION
  Report Type: Report from Study
  Country: US (occurrence: US)
  Receive Date: 20220201
  Receipt Date: 20220601
  Transmission Date: 20220720
  Serious: No
  Sender: FDA-Public Use
  Company Number: US-NOVARTISTESTPH-NVSC2022US020820

PATIENT
  Sex: Male

DRUGS (2)
  1. COSENTYX [Suspect]
     Active Substance: SECUKINUMAB
     Indication: Psoriatic arthropathy
     Dosage: UNK UNK, QMO
     Route: 058
     Dates: start: 202112
  2. COSENTYX [Suspect]
     Active Substance: SECUKINUMAB
     Dosage: UNK, Q2W
     Route: 058
     Dates: start: 202112

REACTIONS (5)
  - Neuroma [Recovering/Resolving]
  - Pain [Recovering/Resolving]
  - Rebound effect [Recovering/Resolving]
  - Therapeutic product effect incomplete [Unknown]
  - Peripheral swelling [Not Recovered/Not Resolved]
